FAERS Safety Report 19250224 (Version 3)
Quarter: 2021Q2

REPORT INFORMATION
  Report Type: Report from Study
  Country: None (occurrence: DE)
  Receive Date: 20210512
  Receipt Date: 20210611
  Transmission Date: 20210717
  Serious: Yes (Death, Hospitalization)
  Sender: FDA-Public Use
  Company Number: DE-ULTRAGENYX PHARMACEUTICAL INC.-DE-UGNX-21-00117

PATIENT
  Age: 6 Day

DRUGS (1)
  1. TRIHEPTANOIN. [Suspect]
     Active Substance: TRIHEPTANOIN
     Indication: PYRUVATE CARBOXYLASE DEFICIENCY
     Dates: start: 20210423, end: 20210425

REACTIONS (4)
  - Pulmonary hypertension [Fatal]
  - Cardiomyopathy [Fatal]
  - Clostridium difficile infection [Recovered/Resolved]
  - Metabolic disorder [Fatal]

NARRATIVE: CASE EVENT DATE: 20210424
